FAERS Safety Report 9664510 (Version 1)
Quarter: 2013Q4

REPORT INFORMATION
  Report Type: Spontaneous
  Country: US (occurrence: None)
  Receive Date: 20131030
  Receipt Date: 20131030
  Transmission Date: 20140711
  Serious: Yes (Hospitalization)
  Sender: FDA-Public Use
  Company Number: None

PATIENT
  Age: 71 Year
  Sex: Male
  Weight: 78.3 kg

DRUGS (2)
  1. OLANZAPINE [Suspect]
     Indication: ATRIAL FIBRILLATION
     Route: 048
     Dates: start: 20130615, end: 20130730
  2. OLANZAPINE [Suspect]
     Indication: MANIA
     Route: 048
     Dates: start: 20130615, end: 20130730

REACTIONS (2)
  - Hyponatraemia [None]
  - Hyperglycaemia [None]
